FAERS Safety Report 20309947 (Version 2)
Quarter: 2022Q2

REPORT INFORMATION
  Report Type: Spontaneous
  Country: TR (occurrence: TR)
  Receive Date: 20220107
  Receipt Date: 20220502
  Transmission Date: 20220721
  Serious: Yes (Hospitalization, Other)
  Sender: FDA-Public Use
  Company Number: TR-SA-2021SA435780

PATIENT
  Age: 40 Year
  Sex: Male

DRUGS (3)
  1. ALEMTUZUMAB [Suspect]
     Active Substance: ALEMTUZUMAB
     Indication: Multiple sclerosis relapse
     Dosage: UNK, INFUSION
     Dates: start: 201908, end: 2019
  2. ACYCLOVIR [Concomitant]
     Active Substance: ACYCLOVIR
     Indication: Prophylaxis
     Dosage: UNK
     Dates: start: 2019, end: 2019
  3. ACYCLOVIR [Concomitant]
     Active Substance: ACYCLOVIR
     Dosage: 2X750 MG/D
     Route: 042
     Dates: start: 2019

REACTIONS (11)
  - Meningitis listeria [Recovering/Resolving]
  - Listeriosis [Recovering/Resolving]
  - Headache [Recovering/Resolving]
  - Vomiting [Recovering/Resolving]
  - Leukocytosis [Recovering/Resolving]
  - Pyrexia [Recovering/Resolving]
  - Somnolence [Recovering/Resolving]
  - Musculoskeletal stiffness [Recovering/Resolving]
  - Aspergillus infection [Recovering/Resolving]
  - Rash [Unknown]
  - Pruritus [Unknown]

NARRATIVE: CASE EVENT DATE: 20190101
